FAERS Safety Report 21454501 (Version 1)
Quarter: 2022Q4

REPORT INFORMATION
  Report Type: Spontaneous
  Country: US (occurrence: None)
  Receive Date: 20221013
  Receipt Date: 20221013
  Transmission Date: 20230113
  Serious: No
  Sender: FDA-Public Use
  Company Number: None

PATIENT
  Age: 56 Year
  Sex: Male
  Weight: 149.69 kg

DRUGS (1)
  1. TREMFYA [Suspect]
     Active Substance: GUSELKUMAB
     Indication: Psoriasis
     Dosage: INJECT 100MG  SUBCUTANEOUSLY AT WEEK 0 AND WEEK 4   AS DIRECTED?
     Route: 058

REACTIONS (1)
  - Cardiac failure [None]
